FAERS Safety Report 24937076 (Version 3)
Quarter: 2025Q1

REPORT INFORMATION
  Report Type: Spontaneous
  Country: US (occurrence: US)
  Receive Date: 20250206
  Receipt Date: 20250310
  Transmission Date: 20250408
  Serious: No
  Sender: PFIZER
  Company Number: US-PFIZER INC-202500022564

PATIENT
  Age: 12 Year
  Sex: Female

DRUGS (1)
  1. GENOTROPIN [Suspect]
     Active Substance: SOMATROPIN
     Dates: start: 20250130

REACTIONS (3)
  - Incorrect dose administered by device [Unknown]
  - Device malfunction [Unknown]
  - Device occlusion [Unknown]

NARRATIVE: CASE EVENT DATE: 20250130
